FAERS Safety Report 15370040 (Version 1)
Quarter: 2018Q3

REPORT INFORMATION
  Report Type: Spontaneous
  Country: US (occurrence: US)
  Receive Date: 20180904
  Receipt Date: 20180904
  Transmission Date: 20181010
  Serious: Yes (Hospitalization, Other)
  Sender: FDA-Public Use
  Company Number: None

PATIENT
  Age: 53 Year
  Sex: Female

DRUGS (3)
  1. MEDIPORT [Concomitant]
  2. TYLENOL [Concomitant]
     Active Substance: ACETAMINOPHEN
  3. FLOUROURICIL 5FU [Suspect]
     Active Substance: FLUOROURACIL
     Indication: ANAL CANCER

REACTIONS (6)
  - Memory impairment [None]
  - Chest pain [None]
  - Tinnitus [None]
  - Arteriospasm coronary [None]
  - Cognitive disorder [None]
  - Neuropathy peripheral [None]

NARRATIVE: CASE EVENT DATE: 20170405
